FAERS Safety Report 17366490 (Version 1)
Quarter: 2020Q1

REPORT INFORMATION
  Report Type: Spontaneous
  Country: MM (occurrence: MM)
  Receive Date: 20200204
  Receipt Date: 20200204
  Transmission Date: 20200409
  Serious: Yes (Death, Other)
  Sender: FDA-Public Use
  Company Number: MM-JNJFOC-20200138542

PATIENT
  Sex: Male
  Weight: 32.5 kg

DRUGS (12)
  1. LINEZOLID. [Suspect]
     Active Substance: LINEZOLID
     Indication: TUBERCULOSIS
     Dates: start: 20190215, end: 20200116
  2. ATORVASTATIN [Concomitant]
     Active Substance: ATORVASTATIN
     Indication: DIABETES MELLITUS
     Dates: start: 20190215, end: 20200120
  3. BEDAQUILINE [Suspect]
     Active Substance: BEDAQUILINE
     Indication: TUBERCULOSIS
     Route: 065
     Dates: start: 20190215, end: 20200120
  4. FINAST [Concomitant]
     Indication: BENIGN PROSTATIC HYPERPLASIA
     Dates: start: 20190215, end: 20200120
  5. INSULIN MIXTARD [Concomitant]
     Active Substance: INSULIN HUMAN
     Indication: DIABETES MELLITUS
     Dates: start: 20190215, end: 20200120
  6. AMOXICILLIN W/CLAVULANIC ACID [Suspect]
     Active Substance: AMOXICILLIN\CLAVULANIC ACID
     Indication: TUBERCULOSIS
     Route: 065
     Dates: start: 20190215
  7. ASPRIN [Concomitant]
     Active Substance: ASPIRIN
     Indication: DIABETES MELLITUS
     Dates: start: 20190215, end: 20200120
  8. IMIPENEM CILASTATIN                /00820501/ [Suspect]
     Active Substance: CILASTATIN SODIUM\IMIPENEM
     Indication: TUBERCULOSIS
     Route: 065
     Dates: start: 20190215, end: 20191204
  9. AMLODIPINE [Concomitant]
     Active Substance: AMLODIPINE BESYLATE
     Indication: HYPERTENSION
     Dates: start: 20190215, end: 20200120
  10. CLOFAZIMINE [Suspect]
     Active Substance: CLOFAZIMINE
     Indication: TUBERCULOSIS
     Dates: start: 20190215, end: 20200120
  11. DELAMANID [Suspect]
     Active Substance: DELAMANID
     Indication: TUBERCULOSIS
     Dates: start: 20190215, end: 20200120
  12. CILASTATIN [Suspect]
     Active Substance: CILASTATIN
     Indication: TUBERCULOSIS

REACTIONS (7)
  - Diabetes mellitus [Fatal]
  - Anaemia [Not Recovered/Not Resolved]
  - Intentional product use issue [Unknown]
  - Tuberculosis [Fatal]
  - Weight decreased [Unknown]
  - Cerebrovascular accident [Fatal]
  - Off label use [Unknown]

NARRATIVE: CASE EVENT DATE: 20190614
